FAERS Safety Report 24030520 (Version 1)
Quarter: 2024Q2

REPORT INFORMATION
  Report Type: Spontaneous
  Country: US (occurrence: US)
  Receive Date: 20240628
  Receipt Date: 20240628
  Transmission Date: 20240715
  Serious: Yes (Death, Life-Threatening, Hospitalization, Other)
  Sender: FDA-Public Use
  Company Number: None

PATIENT
  Age: 76 Year
  Sex: Female

DRUGS (1)
  1. ALLOPURINOL [Suspect]
     Active Substance: ALLOPURINOL
     Indication: Gout

REACTIONS (10)
  - Multiple organ dysfunction syndrome [Fatal]
  - Gastrointestinal inflammation [Fatal]
  - Toxic epidermal necrolysis [Fatal]
  - Stevens-Johnson syndrome [Fatal]
  - Oesophagitis [Fatal]
  - Renal failure [Fatal]
  - Shock [Fatal]
  - Noninfective conjunctivitis [Fatal]
  - Respiratory failure [Fatal]
  - Liver injury [Fatal]
